FAERS Safety Report 8165448-0 (Version None)
Quarter: 2012Q1

REPORT INFORMATION
  Report Type: 
  Country: None (occurrence: None)
  Receive Date: 20120223
  Receipt Date: 20120223
  Transmission Date: 20120608
  Serious: Yes (Other)
  Sender: FDA-Public Use
  Company Number: None

PATIENT
  Age: 45 Year
  Sex: Female

DRUGS (2)
  1. FLUOXETINE [Suspect]
     Indication: OBSESSIVE-COMPULSIVE DISORDER
     Dosage: 20 MG THREE QD PO
     Route: 048
     Dates: start: 20010101
  2. FLUOXETINE [Suspect]
     Indication: MAJOR DEPRESSION
     Dosage: 20 MG THREE QD PO
     Route: 048
     Dates: start: 20010101

REACTIONS (5)
  - NAUSEA [None]
  - PAIN [None]
  - PRODUCT SUBSTITUTION ISSUE [None]
  - REFLUX GASTRITIS [None]
  - DYSPEPSIA [None]
